FAERS Safety Report 10717947 (Version 2)
Quarter: 2015Q1

REPORT INFORMATION
  Report Type: Spontaneous
  Country: US (occurrence: US)
  Receive Date: 20150116
  Receipt Date: 20150204
  Transmission Date: 20150721
  Serious: Yes (Death, Hospitalization)
  Sender: FDA-Public Use
  Company Number: US-ACTELION-A-US2015-111303

PATIENT
  Age: 61 Year
  Sex: Female

DRUGS (25)
  1. XARELTO [Concomitant]
     Active Substance: RIVAROXABAN
  2. LORAZEPAM. [Concomitant]
     Active Substance: LORAZEPAM
  3. DESYREL [Concomitant]
     Active Substance: TRAZODONE HYDROCHLORIDE
  4. VENTAVIS [Suspect]
     Active Substance: ILOPROST
     Indication: PULMONARY ARTERIAL HYPERTENSION
     Dosage: 6 X /DAY
     Route: 055
     Dates: start: 201309
  5. CITALOPRAM [Concomitant]
     Active Substance: CITALOPRAM HYDROBROMIDE
  6. LEVOTHYROXINE [Concomitant]
     Active Substance: LEVOTHYROXINE
  7. TADALAFIL [Concomitant]
     Active Substance: TADALAFIL
  8. ULTRAM [Concomitant]
     Active Substance: TRAMADOL HYDROCHLORIDE
  9. BUSPIRONE [Concomitant]
     Active Substance: BUSPIRONE HYDROCHLORIDE
  10. PANTOPRAZOLE [Concomitant]
     Active Substance: PANTOPRAZOLE SODIUM
  11. DILTIAZEM [Concomitant]
     Active Substance: DILTIAZEM
  12. ESCITALOPRAM [Concomitant]
     Active Substance: ESCITALOPRAM OXALATE
  13. ONDANSETRON [Concomitant]
     Active Substance: ONDANSETRON
  14. VITAMIN D [Concomitant]
     Active Substance: CHOLECALCIFEROL
  15. ALBUTEROL. [Concomitant]
     Active Substance: ALBUTEROL
  16. FUROSEMIDE. [Concomitant]
     Active Substance: FUROSEMIDE
  17. BUPROPION [Concomitant]
     Active Substance: BUPROPION
  18. DIOVAN [Concomitant]
     Active Substance: VALSARTAN
  19. ACETAMINOPHEN. [Concomitant]
     Active Substance: ACETAMINOPHEN
  20. POTASSIUM CHLORIDE. [Concomitant]
     Active Substance: POTASSIUM CHLORIDE
  21. FLUTICASONE [Concomitant]
     Active Substance: FLUTICASONE\FLUTICASONE PROPIONATE
  22. OMEPRAZOLE. [Concomitant]
     Active Substance: OMEPRAZOLE
  23. OPSUMIT [Suspect]
     Active Substance: MACITENTAN
     Indication: PULMONARY ARTERIAL HYPERTENSION
     Dosage: 10 MG, QD
     Route: 048
     Dates: start: 201405
  24. FAMOTIDINE. [Concomitant]
     Active Substance: FAMOTIDINE
  25. ZESTORETIC-20/12.5 [Concomitant]

REACTIONS (11)
  - Decreased appetite [Recovering/Resolving]
  - Diarrhoea [Recovered/Resolved]
  - Lactic acidosis [Recovered/Resolved]
  - Hypokalaemia [Recovering/Resolving]
  - Abdominal pain [Unknown]
  - Pulmonary arterial hypertension [Fatal]
  - Disease progression [Fatal]
  - Asthenia [Recovering/Resolving]
  - Acute kidney injury [Recovered/Resolved]
  - Dizziness [Recovering/Resolving]
  - Sepsis [Unknown]

NARRATIVE: CASE EVENT DATE: 201412
